FAERS Safety Report 15721471 (Version 7)
Quarter: 2019Q3

REPORT INFORMATION
  Report Type: Report from Study
  Country: CA (occurrence: CA)
  Receive Date: 20181214
  Receipt Date: 20190802
  Transmission Date: 20191004
  Serious: Yes (Other)
  Sender: FDA-Public Use
  Company Number: CA-ROCHE-2133198

PATIENT
  Age: 39 Year
  Sex: Female

DRUGS (12)
  1. ADVIL [IBUPROFEN] [Concomitant]
     Active Substance: IBUPROFEN
     Route: 048
  2. ACETAMINOPHEN. [Concomitant]
     Active Substance: ACETAMINOPHEN
     Route: 048
  3. STATEX [MORPHINE SULFATE] [Concomitant]
     Active Substance: MORPHINE SULFATE
     Indication: PAIN
     Route: 065
  4. NACL [Concomitant]
     Active Substance: SODIUM CHLORIDE
     Dosage: 0.9% 100 CC
     Route: 065
  5. OCREVUS [Suspect]
     Active Substance: OCRELIZUMAB
     Dosage: HALF DOSE (1 AND 2)
     Route: 042
     Dates: start: 20180613
  6. ASPIRIN [ACETYLSALICYLIC ACID] [Concomitant]
     Active Substance: ASPIRIN
     Route: 065
  7. DULOXETINE. [Concomitant]
     Active Substance: DULOXETINE
     Indication: DEPRESSION
     Dosage: SINCE 6 MONTHS TO 1 YEAR ANTIDEPRESSANT
     Route: 065
  8. DULOXETINE. [Concomitant]
     Active Substance: DULOXETINE
     Indication: PAIN
  9. METHYLPREDNISOLONE. [Concomitant]
     Active Substance: METHYLPREDNISOLONE
     Indication: PREMEDICATION
     Route: 042
  10. OCREVUS [Suspect]
     Active Substance: OCRELIZUMAB
     Dosage: DOSE 3: 600 MG?23/JUL/2019
     Route: 042
  11. SYNTHROID [Concomitant]
     Active Substance: LEVOTHYROXINE SODIUM
     Dosage: 0.025 MG ONCE DAILY
     Route: 065
     Dates: start: 2007
  12. OCREVUS [Suspect]
     Active Substance: OCRELIZUMAB
     Indication: RELAPSING-REMITTING MULTIPLE SCLEROSIS
     Dosage: HALF DOSE (1 AND 2)?300 MG ON DAY 0 AND 14, THEN 600 MG EVERY 6 MONTHS
     Route: 042
     Dates: start: 20180530

REACTIONS (19)
  - Pruritus [Not Recovered/Not Resolved]
  - Skin exfoliation [Not Recovered/Not Resolved]
  - Hypertension [Unknown]
  - Pain in extremity [Unknown]
  - Hot flush [Recovering/Resolving]
  - Headache [Recovering/Resolving]
  - Pain in extremity [Not Recovered/Not Resolved]
  - Malaise [Not Recovered/Not Resolved]
  - Nasal congestion [Recovering/Resolving]
  - Palpitations [Not Recovered/Not Resolved]
  - Nasopharyngitis [Recovering/Resolving]
  - Pruritus generalised [Not Recovered/Not Resolved]
  - Bronchitis [Recovering/Resolving]
  - Memory impairment [Not Recovered/Not Resolved]
  - Infusion related reaction [Recovered/Resolved]
  - Fatigue [Not Recovered/Not Resolved]
  - Skin plaque [Not Recovered/Not Resolved]
  - Oropharyngeal pain [Not Recovered/Not Resolved]
  - Infusion related reaction [Not Recovered/Not Resolved]

NARRATIVE: CASE EVENT DATE: 20180530
